FAERS Safety Report 12404659 (Version 1)
Quarter: 2016Q2

REPORT INFORMATION
  Report Type: Report from Study
  Country: US (occurrence: US)
  Receive Date: 20160525
  Receipt Date: 20160525
  Transmission Date: 20160815
  Serious: Yes (Hospitalization)
  Sender: FDA-Public Use
  Company Number: US-JNJFOC-20160521138

PATIENT
  Age: 69 Year
  Sex: Male

DRUGS (2)
  1. AMLODIPINE [Concomitant]
     Active Substance: AMLODIPINE BESYLATE
  2. IMBRUVICA [Suspect]
     Active Substance: IBRUTINIB
     Indication: CHRONIC LYMPHOCYTIC LEUKAEMIA
     Route: 048
     Dates: start: 20160302

REACTIONS (4)
  - Cardiac failure congestive [Unknown]
  - Pneumonia [Unknown]
  - Product use issue [Not Recovered/Not Resolved]
  - Off label use [Not Recovered/Not Resolved]

NARRATIVE: CASE EVENT DATE: 20160302
